FAERS Safety Report 10386256 (Version 3)
Quarter: 2014Q4

REPORT INFORMATION
  Report Type: Spontaneous
  Country: IT (occurrence: IT)
  Receive Date: 20140815
  Receipt Date: 20141208
  Transmission Date: 20150528
  Serious: Yes (Hospitalization)
  Sender: FDA-Public Use
  Company Number: PHHY2014IT096742

PATIENT
  Age: 73 Year
  Sex: Male

DRUGS (1)
  1. AFINITOR [Suspect]
     Active Substance: EVEROLIMUS
     Indication: RENAL CANCER
     Dosage: 10 MG, QD
     Route: 048
     Dates: start: 20140601, end: 20140617

REACTIONS (3)
  - Dyspnoea [Recovering/Resolving]
  - Lung disorder [Recovering/Resolving]
  - Epiglottitis [Recovering/Resolving]

NARRATIVE: CASE EVENT DATE: 20140718
